FAERS Safety Report 5127529-5 (Version None)
Quarter: 2006Q4

REPORT INFORMATION
  Report Type: 
  Country: None (occurrence: None)
  Receive Date: 20061016
  Receipt Date: 20061002
  Transmission Date: 20070319
  Serious: Yes (Other)
  Sender: FDA-Public Use
  Company Number: US-JNJFOC-20061000809

PATIENT
  Sex: Female
  Weight: 45.36 kg

DRUGS (12)
  1. REMICADE [Suspect]
     Indication: RHEUMATOID ARTHRITIS
  2. PLAQUENIL [Concomitant]
  3. METHOTREXATE [Concomitant]
  4. GOLD [Concomitant]
  5. METHOTREXATE [Concomitant]
  6. DAYPRO [Concomitant]
  7. CELEBREX [Concomitant]
  8. PROTONIX [Concomitant]
  9. PRILOSEC [Concomitant]
  10. NARCOTICS [Concomitant]
  11. HYDROCODONE BITARTRATE [Concomitant]
  12. TRAMADOL HCL [Concomitant]

REACTIONS (1)
  - NON-HODGKIN'S LYMPHOMA [None]
